FAERS Safety Report 12438625 (Version 1)
Quarter: 2016Q2

REPORT INFORMATION
  Report Type: Spontaneous
  Country: US (occurrence: US)
  Receive Date: 20160606
  Receipt Date: 20160606
  Transmission Date: 20160815
  Serious: Yes (Hospitalization, Disabling, Other)
  Sender: FDA-Public Use
  Company Number: US-SMITH AND NEPHEW, INC-2016SMT00465

PATIENT
  Sex: Female
  Weight: 67.12 kg

DRUGS (3)
  1. COUMADIN [Concomitant]
     Active Substance: WARFARIN SODIUM
  2. REGRANEX [Suspect]
     Active Substance: BECAPLERMIN
     Indication: DIABETIC FOOT
     Dosage: UNK UNK, 1X/DAY
     Route: 061
     Dates: start: 2016, end: 201604
  3. POTENTIAL OTHER UNSPECIFIED MEDICATIONS [Concomitant]

REACTIONS (11)
  - Dyspnoea [Recovered/Resolved]
  - Wound complication [Recovered/Resolved]
  - Pain [Recovered/Resolved]
  - Abasia [Not Recovered/Not Resolved]
  - Drooling [Recovered/Resolved]
  - Dysarthria [Recovered/Resolved]
  - Hypovolaemia [Recovered/Resolved]
  - Wound infection [Recovered/Resolved]
  - Inflammation of wound [Recovered/Resolved]
  - Blood potassium decreased [Recovered/Resolved]
  - Eating disorder [Recovered/Resolved]

NARRATIVE: CASE EVENT DATE: 2016
